FAERS Safety Report 25418758 (Version 1)
Quarter: 2025Q2

REPORT INFORMATION
  Report Type: Spontaneous
  Country: US (occurrence: None)
  Receive Date: 20250610
  Receipt Date: 20250610
  Transmission Date: 20250717
  Serious: Yes (Hospitalization, Other)
  Sender: FDA-CTU
  Company Number: None

PATIENT
  Age: 72 Year
  Sex: Male

DRUGS (1)
  1. LENALIDOMIDE [Suspect]
     Active Substance: LENALIDOMIDE
     Indication: Plasma cell myeloma

REACTIONS (8)
  - Transplant [None]
  - Neuropathy peripheral [None]
  - Oedema peripheral [None]
  - Fall [None]
  - Head injury [None]
  - Concussion [None]
  - Haemorrhage [None]
  - Therapy interrupted [None]
